FAERS Safety Report 4410042-8 (Version None)
Quarter: 2004Q3

REPORT INFORMATION
  Report Type: 
  Country: None (occurrence: None)
  Receive Date: 20040728
  Receipt Date: 20040621
  Transmission Date: 20050211
  Serious: Yes (Other)
  Sender: FDA-Public Use
  Company Number: PHBS2004BR08261

PATIENT
  Age: 24 Year
  Sex: Female

DRUGS (4)
  1. TRILEPTAL [Suspect]
     Indication: BIPOLAR I DISORDER
     Dosage: 1500 MG/D
     Route: 048
  2. FLUOXETINE [Suspect]
     Indication: BIPOLAR I DISORDER
  3. LAMOTRIGINE [Suspect]
     Indication: BIPOLAR I DISORDER
  4. RIVOTRIL [Suspect]
     Indication: BIPOLAR I DISORDER

REACTIONS (4)
  - ABORTION SPONTANEOUS [None]
  - DRUG EXPOSURE DURING PREGNANCY [None]
  - UTERINE DILATION AND CURETTAGE [None]
  - VAGINAL HAEMORRHAGE [None]
